FAERS Safety Report 10763791 (Version 3)
Quarter: 2015Q3

REPORT INFORMATION
  Report Type: Spontaneous
  Country: US (occurrence: US)
  Receive Date: 20150204
  Receipt Date: 20150819
  Transmission Date: 20151125
  Serious: No
  Sender: FDA-Public Use
  Company Number: US-GILEAD-2015-0135519

PATIENT
  Age: 78 Year
  Sex: Female

DRUGS (1)
  1. LETAIRIS [Suspect]
     Active Substance: AMBRISENTAN
     Indication: PRODUCT USED FOR UNKNOWN INDICATION
     Dosage: 5 MG, QD
     Route: 065
     Dates: start: 20131219

REACTIONS (3)
  - Unevaluable event [Not Recovered/Not Resolved]
  - Rhinorrhoea [Unknown]
  - Increased upper airway secretion [Not Recovered/Not Resolved]
